FAERS Safety Report 7987038-2 (Version None)
Quarter: 2011Q4

REPORT INFORMATION
  Report Type: 
  Country: None (occurrence: None)
  Receive Date: 20111216
  Receipt Date: 20110921
  Transmission Date: 20120403
  Serious: No
  Sender: FDA-Public Use
  Company Number: US-BRISTOL-MYERS SQUIBB COMPANY-16072068

PATIENT
  Age: 41 Year
  Sex: Female

DRUGS (8)
  1. ABILIFY [Suspect]
     Indication: ANXIETY
  2. SYNTHROID [Concomitant]
  3. YAZ [Concomitant]
     Dosage: YAZ BIRTH CONTROL PILLS
  4. ASPIRIN [Concomitant]
  5. ABILIFY [Suspect]
     Indication: DEPRESSION
  6. PRISTIQ [Suspect]
     Indication: ANXIETY
  7. PRISTIQ [Suspect]
     Indication: DEPRESSION
  8. LISINOPRIL AND HYDROCHLOROTHIAZIDE [Concomitant]
     Indication: BLOOD PRESSURE

REACTIONS (3)
  - CIRCUMSTANCE OR INFORMATION CAPABLE OF LEADING TO MEDICATION ERROR [None]
  - VISION BLURRED [None]
  - HEADACHE [None]
